FAERS Safety Report 10578004 (Version 1)
Quarter: 2014Q4

REPORT INFORMATION
  Report Type: Spontaneous
  Country: US (occurrence: US)
  Receive Date: 20141112
  Receipt Date: 20141112
  Transmission Date: 20150529
  Serious: Yes (Other)
  Sender: FDA-Public Use
  Company Number: US-CIPLA LTD.-2014US01755

PATIENT

DRUGS (3)
  1. DOCETAXEL. [Suspect]
     Active Substance: DOCETAXEL
     Indication: NEOPLASM
     Dosage: 75 MG/M2 INTRAVENOUSLY ON CYCLE 1, DAY 1  EVERY 3 WEEKS
  2. TRASTUZUMAB [Suspect]
     Active Substance: TRASTUZUMAB
     Dosage: INTRAVENOUSLY AT 6 MG/KG ON CYCLE 1, DAY 2AND CYCLE 1, DAY 8, FOLLOWED BY 6 MG/KG ON DAY 1
  3. CARBOPLATIN. [Suspect]
     Active Substance: CARBOPLATIN
     Indication: NEOPLASM
     Dosage: AUC 6 MG/ML/MIN,INTRAVENOUSLY ON CYCLE 1, DAY 1  EVERY 3 WEEKS

REACTIONS (3)
  - Electrocardiogram QT prolonged [Unknown]
  - Left ventricular dysfunction [None]
  - Hypocalcaemia [Unknown]
